FAERS Safety Report 5806677-8 (Version None)
Quarter: 2008Q3

REPORT INFORMATION
  Report Type: 
  Country: None (occurrence: None)
  Receive Date: 20080710
  Receipt Date: 20080505
  Transmission Date: 20090109
  Serious: Yes (Disabling)
  Sender: FDA-Public Use
  Company Number: US-MERCK-0805USA00676

PATIENT
  Age: 8 Year
  Sex: Female
  Weight: 39 kg

DRUGS (4)
  1. SINGULAIR [Suspect]
     Indication: RHINITIS ALLERGIC
     Route: 048
     Dates: start: 20070501, end: 20080201
  2. SINGULAIR [Suspect]
     Route: 048
     Dates: start: 20080101, end: 20080301
  3. SINGULAIR [Suspect]
     Indication: ASTHMA
     Route: 048
     Dates: start: 20070501, end: 20080201
  4. SINGULAIR [Suspect]
     Route: 048
     Dates: start: 20080101, end: 20080301

REACTIONS (4)
  - DEPRESSION [None]
  - MOOD ALTERED [None]
  - SELF ESTEEM DECREASED [None]
  - SOCIAL PROBLEM [None]
